FAERS Safety Report 5564595-7 (Version None)
Quarter: 2007Q4

REPORT INFORMATION
  Report Type: 
  Country: None (occurrence: None)
  Receive Date: 20071212
  Receipt Date: 20071203
  Transmission Date: 20080405
  Serious: Yes (Hospitalization)
  Sender: FDA-Public Use
  Company Number: E2020-01870-SPO-GB

PATIENT
  Age: 70 Year
  Sex: Female

DRUGS (8)
  1. ARICEPT [Suspect]
     Indication: DEMENTIA ALZHEIMER'S TYPE
     Dosage: 5 MG, 1 IN 1 D, ORAL
     Route: 048
     Dates: start: 20060401, end: 20071017
  2. QUETIAPINE FUMARATE [Concomitant]
  3. AMLODIPINE [Concomitant]
  4. BENDROFLUMETHIAZIDE (BENDROFLUMETHIAZIDE) [Concomitant]
  5. ASPIRIN [Concomitant]
  6. ENSURE PLUS (ENSURE PLUS) [Concomitant]
  7. CALOGEN (CALCITONIN, SALMON) [Concomitant]
  8. MOVICOL (NULYTELY) [Concomitant]

REACTIONS (2)
  - ASTHENIA [None]
  - GRAND MAL CONVULSION [None]
